FAERS Safety Report 4536360-0 (Version None)
Quarter: 2004Q4

REPORT INFORMATION
  Report Type: 
  Country: None (occurrence: None)
  Receive Date: 20041223
  Receipt Date: 20040819
  Transmission Date: 20050328
  Serious: No
  Sender: FDA-Public Use
  Company Number: US-GLAXOSMITHKLINE-A0522814A

PATIENT
  Age: 82 Year
  Sex: Male

DRUGS (3)
  1. FLONASE [Suspect]
     Dosage: 1SPR TWICE PER DAY
     Route: 045
     Dates: start: 20040817
  2. HYTRIN [Concomitant]
  3. MULTIVITAMIN [Concomitant]

REACTIONS (1)
  - VISUAL DISTURBANCE [None]
